FAERS Safety Report 16473391 (Version 2)
Quarter: 2021Q2

REPORT INFORMATION
  Report Type: Spontaneous
  Country: US (occurrence: US)
  Receive Date: 20190625
  Receipt Date: 20210415
  Transmission Date: 20210716
  Serious: Yes (Disabling)
  Sender: FDA-Public Use
  Company Number: US-TEVA-2019-US-1066085

PATIENT

DRUGS (3)
  1. TAXOTERE [Suspect]
     Active Substance: DOCETAXEL
     Dates: start: 20131016, end: 20131218
  2. DOCETAXEL SANOFI WINTHROP [Suspect]
     Active Substance: DOCETAXEL
     Dates: start: 20131016, end: 20131218
  3. DOCETAXEL ACCORD [Suspect]
     Active Substance: DOCETAXEL
     Dates: start: 20131016, end: 20131218

REACTIONS (1)
  - Alopecia [Not Recovered/Not Resolved]
